FAERS Safety Report 9034824 (Version 1)
Quarter: 2013Q1

REPORT INFORMATION
  Report Type: Spontaneous
  Country: US (occurrence: None)
  Receive Date: 20130116
  Receipt Date: 20130116
  Transmission Date: 20140127
  Serious: Yes (Hospitalization)
  Sender: FDA-Public Use
  Company Number: None

PATIENT
  Sex: Male
  Weight: 82.5 kg

DRUGS (4)
  1. CARMUSTINE [Suspect]
  2. CYTARABINE [Suspect]
  3. ETOPOSIDE (VP-16) [Suspect]
  4. MELPHALAN [Suspect]

REACTIONS (16)
  - Diarrhoea [None]
  - Hypotension [None]
  - Lung infiltration [None]
  - Hypovolaemia [None]
  - Sepsis [None]
  - Acute respiratory distress syndrome [None]
  - Pneumonitis [None]
  - Fluid overload [None]
  - Hypoxia [None]
  - Vomiting projectile [None]
  - Ileus [None]
  - Enteritis [None]
  - Norovirus test positive [None]
  - Apoptosis [None]
  - Abscess intestinal [None]
  - Intestinal dilatation [None]
